FAERS Safety Report 15187477 (Version 2)
Quarter: 2020Q2

REPORT INFORMATION
  Report Type: Spontaneous
  Country: US (occurrence: US)
  Receive Date: 20180723
  Receipt Date: 20200601
  Transmission Date: 20200713
  Serious: Yes (Death, Other)
  Sender: FDA-Public Use
  Company Number: US-ASTRAZENECA-2018SE92609

PATIENT
  Age: 25684 Day
  Sex: Male
  Weight: 112.5 kg

DRUGS (30)
  1. JANUVIA [Suspect]
     Active Substance: SITAGLIPTIN PHOSPHATE
     Indication: TYPE 2 DIABETES MELLITUS
     Route: 048
     Dates: start: 20150714, end: 201604
  2. COREG [Concomitant]
     Active Substance: CARVEDILOL
  3. LASIX [Concomitant]
     Active Substance: FUROSEMIDE
  4. CLARITIN [Concomitant]
     Active Substance: LORATADINE
  5. BYDUREON [Suspect]
     Active Substance: EXENATIDE
     Indication: TYPE 2 DIABETES MELLITUS
     Route: 065
     Dates: start: 20150121, end: 201704
  6. ATIVAN [Concomitant]
     Active Substance: LORAZEPAM
  7. ALLEGRA [Concomitant]
     Active Substance: FEXOFENADINE HYDROCHLORIDE
  8. NEURONTIN [Concomitant]
     Active Substance: GABAPENTIN
  9. TANZEUM [Concomitant]
     Active Substance: ALBIGLUTIDE
  10. PEPCID [Concomitant]
     Active Substance: FAMOTIDINE
  11. ATARAX [Concomitant]
     Active Substance: HYDROXYZINE HYDROCHLORIDE
  12. BYDUREON [Suspect]
     Active Substance: EXENATIDE
     Indication: TYPE 2 DIABETES MELLITUS
     Dosage: ADMINISTER 0.65 ML SUBCUTANEOUSLY EVERY WEEK
     Route: 058
     Dates: start: 20151016, end: 201704
  13. VICTOZA [Suspect]
     Active Substance: LIRAGLUTIDE
     Indication: DIABETES MELLITUS
     Dosage: 0.6MG-1.2MG ONCE DAILY
     Route: 065
     Dates: start: 20170720, end: 201710
  14. GLUCOPHAGE [Concomitant]
     Active Substance: METFORMIN HYDROCHLORIDE
  15. PERCOCET [Concomitant]
     Active Substance: ACETAMINOPHEN\OXYCODONE HYDROCHLORIDE
  16. COMPAZINE [Concomitant]
     Active Substance: PROCHLORPERAZINE MALEATE
  17. BENADRYL) [Concomitant]
  18. DELTASONE [Concomitant]
     Active Substance: PREDNISONE
  19. ZOFRAN [Concomitant]
     Active Substance: ONDANSETRON HYDROCHLORIDE
  20. BENADRYL [Concomitant]
     Active Substance: DIPHENHYDRAMINE HYDROCHLORIDE
  21. INVOKANA [Concomitant]
     Active Substance: CANAGLIFLOZIN
  22. EPIPEN [Concomitant]
     Active Substance: EPINEPHRINE
  23. JANUVIA [Suspect]
     Active Substance: SITAGLIPTIN PHOSPHATE
     Indication: TYPE 2 DIABETES MELLITUS
     Route: 065
     Dates: start: 201203, end: 201604
  24. JANUVIA [Suspect]
     Active Substance: SITAGLIPTIN PHOSPHATE
     Indication: TYPE 2 DIABETES MELLITUS
     Route: 048
     Dates: start: 20120322, end: 201204
  25. GLUCOTROL [Concomitant]
     Active Substance: GLIPIZIDE
  26. TAMIFLU [Concomitant]
     Active Substance: OSELTAMIVIR PHOSPHATE
  27. VITAMIN D2 [Concomitant]
     Active Substance: ERGOCALCIFEROL
  28. PRINIVIL [Concomitant]
     Active Substance: LISINOPRIL
  29. MEVACOR [Concomitant]
     Active Substance: LOVASTATIN
  30. TYLENOL [Concomitant]
     Active Substance: ACETAMINOPHEN

REACTIONS (5)
  - Jaundice cholestatic [Unknown]
  - Metastases to lymph nodes [Unknown]
  - Pancreatic carcinoma [Fatal]
  - Metastases to liver [Fatal]
  - Pancytopenia [Fatal]

NARRATIVE: CASE EVENT DATE: 20171009
